FAERS Safety Report 10591919 (Version 1)
Quarter: 2014Q4

REPORT INFORMATION
  Report Type: Report from Study
  Country: US (occurrence: US)
  Receive Date: 20141119
  Receipt Date: 20141119
  Transmission Date: 20150529
  Serious: Yes (Other)
  Sender: FDA-Public Use
  Company Number: US-AMGEN-USASL2014088141

PATIENT
  Age: 69 Year
  Sex: Female

DRUGS (1)
  1. PROLIA [Suspect]
     Active Substance: DENOSUMAB
     Indication: PRODUCT USED FOR UNKNOWN INDICATION
     Dosage: UNK
     Route: 065
     Dates: start: 2011

REACTIONS (7)
  - Rheumatoid arthritis [Unknown]
  - Pruritus [Unknown]
  - Poor quality sleep [Unknown]
  - Renal disorder [Unknown]
  - Anaemia [Unknown]
  - Ill-defined disorder [Unknown]
  - Fatigue [Unknown]
